FAERS Safety Report 9729085 (Version 2)
Quarter: 2015Q2

REPORT INFORMATION
  Report Type: Spontaneous
  Country: IN (occurrence: IN)
  Receive Date: 20131204
  Receipt Date: 20150522
  Transmission Date: 20150821
  Serious: Yes (Hospitalization)
  Sender: FDA-Public Use
  Company Number: PHHY2013IN137213

PATIENT
  Age: 7 Year
  Sex: Female

DRUGS (4)
  1. VINBLASTINE [Concomitant]
     Active Substance: VINBLASTINE
     Indication: HODGKIN^S DISEASE
     Route: 065
  2. DOXORUBICIN [Suspect]
     Active Substance: DOXORUBICIN
     Indication: HODGKIN^S DISEASE
     Route: 065
  3. BLEOMYCIN [Concomitant]
     Active Substance: BLEOMYCIN SULFATE
     Indication: HODGKIN^S DISEASE
     Route: 065
  4. DACARBAZINE. [Concomitant]
     Active Substance: DACARBAZINE
     Indication: HODGKIN^S DISEASE
     Route: 065

REACTIONS (7)
  - Multi-organ disorder [Recovered/Resolved]
  - Ischaemia [Recovered/Resolved]
  - Cardiogenic shock [Recovered/Resolved]
  - Cardiac failure congestive [Recovered/Resolved]
  - Hypoxia [Recovered/Resolved]
  - Cardiac arrest [Recovered/Resolved]
  - Lactic acidosis [Recovered/Resolved]
